FAERS Safety Report 5455119-3 (Version None)
Quarter: 2007Q3

REPORT INFORMATION
  Report Type: 
  Country: None (occurrence: None)
  Receive Date: 20070914
  Receipt Date: 20070823
  Transmission Date: 20080115
  Serious: Yes (Congenital Anomaly)
  Sender: FDA-Public Use
  Company Number: 6037596

PATIENT

DRUGS (1)
  1. LOVAN (FLUOXETINE HYDROCHLORIDE) [Suspect]
     Dosage: TRANSPLACENTAL
     Route: 064

REACTIONS (4)
  - CONGENITAL ANOMALY [None]
  - DRUG EXPOSURE DURING PREGNANCY [None]
  - DYSMORPHISM [None]
  - PREGNANCY [None]
